FAERS Safety Report 16929690 (Version 2)
Quarter: 2019Q4

REPORT INFORMATION
  Report Type: Spontaneous
  Country: JP (occurrence: JP)
  Receive Date: 20191017
  Receipt Date: 20191127
  Transmission Date: 20200122
  Serious: Yes (Hospitalization)
  Sender: FDA-Public Use
  Company Number: JP-PFIZER INC-2019375645

PATIENT
  Age: 44 Year
  Sex: Female

DRUGS (2)
  1. RHEUMATREX [Suspect]
     Active Substance: METHOTREXATE SODIUM
     Indication: RHEUMATOID ARTHRITIS
     Dosage: ((WED)2 MG, (THU) 2 MG; 2 TIMES, 1 TIME)
     Route: 048
     Dates: start: 20170903, end: 20180115
  2. RHEUMATREX [Suspect]
     Active Substance: METHOTREXATE SODIUM
     Dosage: ((WED)MORNING: 4 MG, EVENING: 2 MG, (THU) 2 MG; 2 TIMES, 1 TIME)
     Route: 048
     Dates: start: 20180116, end: 20190909

REACTIONS (3)
  - Contusion [Unknown]
  - Malaise [Recovered/Resolved]
  - Fatigue [Unknown]

NARRATIVE: CASE EVENT DATE: 20190829
